FAERS Safety Report 4431112-4 (Version None)
Quarter: 2004Q3

REPORT INFORMATION
  Report Type: 
  Country: None (occurrence: None)
  Receive Date: 20040817
  Receipt Date: 20040802
  Transmission Date: 20050211
  Serious: No
  Sender: FDA-Public Use
  Company Number: 2004GB01891

PATIENT
  Sex: Female

DRUGS (2)
  1. MARCAINE [Suspect]
     Indication: EPIDURAL ANAESTHESIA
     Dates: start: 20040713, end: 20040713
  2. PIRITON [Concomitant]

REACTIONS (1)
  - HEPATITIS [None]
